FAERS Safety Report 7685953-0 (Version None)
Quarter: 2011Q3

REPORT INFORMATION
  Report Type: 
  Country: None (occurrence: None)
  Receive Date: 20110816
  Receipt Date: 20110803
  Transmission Date: 20111222
  Serious: Yes (Life-Threatening, Hospitalization)
  Sender: FDA-Public Use
  Company Number: PHHY2011SN72072

PATIENT
  Sex: Female

DRUGS (1)
  1. COARTEM [Suspect]
     Indication: MALARIA
     Dosage: 8 TABLETS DAILY
     Route: 048
     Dates: start: 20110725

REACTIONS (3)
  - HYPOTENSION [None]
  - CIRCULATORY COLLAPSE [None]
  - RASH GENERALISED [None]
